FAERS Safety Report 7589769-5 (Version None)
Quarter: 2011Q3

REPORT INFORMATION
  Report Type: 
  Country: None (occurrence: None)
  Receive Date: 20110705
  Receipt Date: 20110628
  Transmission Date: 20111222
  Serious: Yes (Hospitalization, Other)
  Sender: FDA-Public Use
  Company Number: US-ALEXION-A201100066

PATIENT
  Sex: Female

DRUGS (11)
  1. METFORMIN HCL [Concomitant]
     Indication: DIABETES MELLITUS
     Dosage: 500 MG, QD
  2. SOLIRIS [Suspect]
     Dosage: 900 MG, Q2W
     Route: 042
     Dates: start: 20101213
  3. FOLIC ACID [Concomitant]
     Dosage: UNK
  4. PRILOSEC [Concomitant]
     Dosage: 20 MG, QD
  5. ATENOLOL [Concomitant]
     Indication: HYPERTENSION
     Dosage: 25 MG, BID
     Route: 048
  6. CALCIUM CARBONATE [Concomitant]
     Indication: SUPPLEMENTATION THERAPY
     Dosage: UNK
  7. VITAMIN A [Concomitant]
     Dosage: UNK
  8. LOVENOX [Suspect]
     Dosage: 0.9 ML, BID
     Dates: start: 20101001, end: 20110101
  9. LEXAPRO [Concomitant]
     Dosage: 10 MG, QD
  10. SOLIRIS [Suspect]
     Indication: PAROXYSMAL NOCTURNAL HAEMOGLOBINURIA
     Dosage: 600 MG, QW
     Route: 042
     Dates: start: 20101108, end: 20101201
  11. LANTUS [Concomitant]
     Indication: DIABETES MELLITUS
     Dosage: UNK

REACTIONS (17)
  - CONVULSION [None]
  - DIZZINESS [None]
  - CEREBROVASCULAR ACCIDENT [None]
  - HAEMORRHAGE [None]
  - MALAISE [None]
  - FATIGUE [None]
  - WHITE BLOOD CELL COUNT DECREASED [None]
  - SUBDURAL HAEMATOMA [None]
  - LOSS OF CONSCIOUSNESS [None]
  - PACKED RED BLOOD CELL TRANSFUSION [None]
  - TRANSFUSION REACTION [None]
  - HEAD INJURY [None]
  - IDIOPATHIC THROMBOCYTOPENIC PURPURA [None]
  - FALL [None]
  - NERVOUSNESS [None]
  - BLOOD GLUCOSE INCREASED [None]
  - PLATELET COUNT DECREASED [None]
